FAERS Safety Report 7042202-4 (Version None)
Quarter: 2010Q4

REPORT INFORMATION
  Report Type: 
  Country: None (occurrence: None)
  Receive Date: 20101013
  Receipt Date: 20101006
  Transmission Date: 20110411
  Serious: Yes (Other)
  Sender: FDA-Public Use
  Company Number: BR-EISAI INC.-E3810-04139-SPO-BR

PATIENT
  Age: 73 Year
  Sex: Female
  Weight: 70 kg

DRUGS (2)
  1. PARIET (RABEPRAZOLE) [Suspect]
     Indication: ULCER
     Dosage: UNKNOWN
     Route: 048
  2. FLUOXETINE [Concomitant]
     Indication: DEPRESSION
     Route: 048

REACTIONS (4)
  - DECREASED APPETITE [None]
  - DEPRESSION [None]
  - NAUSEA [None]
  - TREMOR [None]
